FAERS Safety Report 5893050-X (Version None)
Quarter: 2008Q3

REPORT INFORMATION
  Report Type: 
  Country: None (occurrence: None)
  Receive Date: 20080923
  Receipt Date: 20080605
  Transmission Date: 20090109
  Serious: No
  Sender: FDA-Public Use
  Company Number: US-ASTRAZENECA-2006UW25061

PATIENT
  Age: 505 Month
  Sex: Male
  Weight: 109.1 kg

DRUGS (10)
  1. SEROQUEL [Suspect]
     Indication: SCHIZOPHRENIA
     Dosage: 300-400 MG
     Route: 048
     Dates: start: 20050501
  2. SEROQUEL [Suspect]
     Indication: BIPOLAR DISORDER
     Dosage: 300-400 MG
     Route: 048
     Dates: start: 20050501
  3. SEROQUEL [Suspect]
     Indication: DEPRESSION
     Dosage: 300-400 MG
     Route: 048
     Dates: start: 20050501
  4. SEROQUEL [Suspect]
     Route: 048
     Dates: start: 20051101
  5. SEROQUEL [Suspect]
     Route: 048
     Dates: start: 20051101
  6. SEROQUEL [Suspect]
     Route: 048
     Dates: start: 20051101
  7. HALDOL [Concomitant]
     Dates: start: 19850101
  8. RISPERDAL [Concomitant]
     Dates: start: 20050101
  9. THORAZINE [Concomitant]
     Dates: start: 19850101
  10. ZOLOFT [Concomitant]
     Dates: start: 20060101

REACTIONS (2)
  - HYPERGLYCAEMIA [None]
  - OBESITY [None]
